FAERS Safety Report 11287940 (Version 2)
Quarter: 2015Q3

REPORT INFORMATION
  Report Type: Spontaneous
  Country: US (occurrence: US)
  Receive Date: 20150721
  Receipt Date: 20150805
  Transmission Date: 20151125
  Serious: Yes (Other)
  Sender: FDA-Public Use
  Company Number: US-ABBVIE-15P-163-1427240-00

PATIENT
  Sex: Female
  Weight: 72.19 kg

DRUGS (12)
  1. SYNTHROID [Suspect]
     Active Substance: LEVOTHYROXINE SODIUM
     Route: 048
     Dates: start: 1985
  2. DHEA, TESTOSTERONE, ESTROGEN COMPOUND [Concomitant]
     Indication: HORMONE REPLACEMENT THERAPY
     Route: 061
  3. PROGESTERONE. [Concomitant]
     Active Substance: PROGESTERONE
     Indication: HORMONE REPLACEMENT THERAPY
  4. VISTARIL [Concomitant]
     Active Substance: HYDROXYZINE PAMOATE
     Indication: INSOMNIA
  5. XANAX [Concomitant]
     Active Substance: ALPRAZOLAM
     Indication: PSYCHOMOTOR HYPERACTIVITY
  6. DECADRON [Concomitant]
     Active Substance: DEXAMETHASONE
     Indication: INFLAMMATION
  7. LIDODERM [Concomitant]
     Active Substance: LIDOCAINE
     Indication: PAIN
  8. LINZESS [Concomitant]
     Active Substance: LINACLOTIDE
     Indication: GASTRITIS
  9. SYNTHROID [Suspect]
     Active Substance: LEVOTHYROXINE SODIUM
     Indication: BASEDOW^S DISEASE
     Route: 048
     Dates: start: 1983, end: 1985
  10. LEVSIN [Concomitant]
     Active Substance: HYOSCYAMINE SULFATE
     Indication: VASOSPASM
  11. BETAXOLOL. [Concomitant]
     Active Substance: BETAXOLOL
     Indication: HEART RATE INCREASED
  12. PERCOCET [Concomitant]
     Active Substance: ACETAMINOPHEN\OXYCODONE HYDROCHLORIDE
     Indication: PAIN

REACTIONS (16)
  - Central nervous system lesion [Unknown]
  - Drug ineffective [Not Recovered/Not Resolved]
  - Polyglandular autoimmune syndrome type I [Unknown]
  - Cerebral ischaemia [Unknown]
  - Intervertebral disc annular tear [Not Recovered/Not Resolved]
  - Weight increased [Not Recovered/Not Resolved]
  - Product quality issue [Unknown]
  - Oedema [Unknown]
  - Intervertebral disc protrusion [Not Recovered/Not Resolved]
  - Adrenal neoplasm [Unknown]
  - Blood glucose fluctuation [Unknown]
  - Hypertension [Unknown]
  - Hypothyroidism [Not Recovered/Not Resolved]
  - Hyperadrenalism [Unknown]
  - Nervous system disorder [Unknown]
  - Malabsorption [Unknown]

NARRATIVE: CASE EVENT DATE: 2010
